FAERS Safety Report 5696200-3 (Version None)
Quarter: 2008Q2

REPORT INFORMATION
  Report Type: 
  Country: None (occurrence: None)
  Receive Date: 20080403
  Receipt Date: 20080403
  Transmission Date: 20081010
  Serious: Yes (Life-Threatening, Hospitalization, Other)
  Sender: FDA-Public Use
  Company Number: None

PATIENT
  Age: 59 Year
  Sex: Female
  Weight: 64.5 kg

DRUGS (12)
  1. GEMCITABINE [Suspect]
     Indication: PANCREATIC CARCINOMA METASTATIC
     Dosage: 1000 MG/M**2 QW IV
     Route: 042
     Dates: start: 20080311, end: 20080311
  2. PLACEBO [Suspect]
     Indication: PANCREATIC CARCINOMA METASTATIC
     Dosage: 4 MG/KG Q2W IV
     Route: 042
     Dates: start: 20080311, end: 20080311
  3. PANTOPRAZOLE SODIUM [Concomitant]
  4. EPREX [Concomitant]
  5. ATENOLOL [Concomitant]
  6. MOTILIUM [Concomitant]
  7. ZOLPIDEM [Concomitant]
  8. TRADONAL [Concomitant]
  9. POTASSIUM GLUCONATE TAB [Concomitant]
  10. ESOMEPRAZOLE [Concomitant]
  11. OMEPRAZOLE [Concomitant]
  12. LITICAN [Concomitant]

REACTIONS (4)
  - HAEMATEMESIS [None]
  - HAEMOGLOBIN DECREASED [None]
  - MELAENA [None]
  - PULMONARY EMBOLISM [None]
